FAERS Safety Report 4881591-3 (Version None)
Quarter: 2005Q4

REPORT INFORMATION
  Report Type: 
  Country: None (occurrence: None)
  Receive Date: 20051209
  Receipt Date: 20050817
  Transmission Date: 20060501
  Serious: Yes (Hospitalization, Other)
  Sender: FDA-Public Use
  Company Number: USA-2005-0021055

PATIENT
  Age: 18 Year
  Sex: Male

DRUGS (1)
  1. OXYCONTIN [Suspect]
     Dosage: 600 MG, SEE TEXT, ORAL
     Route: 048

REACTIONS (6)
  - CYANOSIS [None]
  - HYPOVENTILATION [None]
  - LOSS OF CONSCIOUSNESS [None]
  - OVERDOSE [None]
  - PERIPHERAL COLDNESS [None]
  - PULSE ABSENT [None]
